FAERS Safety Report 8448668-7 (Version None)
Quarter: 2012Q2

REPORT INFORMATION
  Report Type: 
  Country: None (occurrence: None)
  Receive Date: 20120619
  Receipt Date: 20120614
  Transmission Date: 20120825
  Serious: Yes (Disabling, Other)
  Sender: FDA-Public Use
  Company Number: US-MERCK-1107USA01627

PATIENT
  Age: 65 Year
  Sex: Female
  Weight: 81 kg

DRUGS (9)
  1. FOSAMAX [Suspect]
     Indication: OSTEOPOROSIS
     Route: 048
     Dates: start: 19950101, end: 20120521
  2. CHOLECALCIFEROL [Concomitant]
     Route: 065
  3. ASCORBIC ACID [Concomitant]
     Route: 065
  4. ASPIRIN [Concomitant]
     Route: 065
  5. OMEGA-3 MARINE TRIGLYCERIDES [Concomitant]
     Route: 065
  6. SIMVASTATIN [Concomitant]
     Route: 048
  7. VITAMINS (UNSPECIFIED) [Concomitant]
     Route: 065
  8. LEVOTHYROXINE SODIUM [Concomitant]
     Route: 065
  9. FOSAMAX [Suspect]
     Indication: HYSTERECTOMY
     Route: 048
     Dates: start: 19950101, end: 20120521

REACTIONS (3)
  - OSTEONECROSIS [None]
  - OSTEONECROSIS OF JAW [None]
  - SKIN INDURATION [None]
